FAERS Safety Report 6200133-3 (Version None)
Quarter: 2009Q2

REPORT INFORMATION
  Report Type: 
  Country: None (occurrence: None)
  Receive Date: 20090522
  Receipt Date: 20090514
  Transmission Date: 20091009
  Serious: Yes (Other)
  Sender: FDA-Public Use
  Company Number: BR-SANOFI-SYNTHELABO-A01200904737

PATIENT
  Sex: Male
  Weight: 70 kg

DRUGS (6)
  1. PROSTEM [Concomitant]
     Indication: HYPERPLASIA
     Dosage: UNK
     Route: 048
  2. PROFOX [Concomitant]
     Indication: ANTIBIOTIC THERAPY
     Dosage: UNK
     Route: 048
  3. XATRAL OD [Suspect]
     Indication: BENIGN PROSTATIC HYPERPLASIA
     Route: 048
     Dates: start: 20090408, end: 20090401
  4. XATRAL OD [Suspect]
     Indication: URINARY RETENTION
     Route: 048
     Dates: start: 20090408, end: 20090401
  5. XATRAL OD [Suspect]
     Route: 048
     Dates: start: 20090420, end: 20090424
  6. XATRAL OD [Suspect]
     Route: 048
     Dates: start: 20090420, end: 20090424

REACTIONS (4)
  - ABDOMINAL PAIN [None]
  - CONDITION AGGRAVATED [None]
  - DRUG INEFFECTIVE [None]
  - URINARY RETENTION [None]
